FAERS Safety Report 24923559 (Version 1)
Quarter: 2025Q1

REPORT INFORMATION
  Report Type: Spontaneous
  Country: FR (occurrence: FR)
  Receive Date: 20250204
  Receipt Date: 20250204
  Transmission Date: 20250409
  Serious: Yes (Life-Threatening)
  Sender: PURDUE
  Company Number: FR-PURDUE-USA-2025-0315067

PATIENT
  Age: 53 Year
  Sex: Male

DRUGS (4)
  1. MORPHINE SULFATE [Suspect]
     Active Substance: MORPHINE SULFATE
     Indication: Drug dependence
     Route: 065
     Dates: start: 202407
  2. BUPRENORPHINE [Suspect]
     Active Substance: BUPRENORPHINE
     Indication: Drug dependence
     Route: 065
     Dates: start: 202407
  3. COCAINE [Suspect]
     Active Substance: COCAINE
     Indication: Product used for unknown indication
     Route: 065
     Dates: start: 202407
  4. CANNABIS SATIVA SUBSP. INDICA TOP [Suspect]
     Active Substance: CANNABIS SATIVA SUBSP. INDICA TOP
     Indication: Product used for unknown indication
     Route: 065
     Dates: start: 202407

REACTIONS (1)
  - Cardio-respiratory arrest [Recovered/Resolved]

NARRATIVE: CASE EVENT DATE: 20240703
